FAERS Safety Report 6993585-2 (Version None)
Quarter: 2010Q3

REPORT INFORMATION
  Report Type: 
  Country: None (occurrence: None)
  Receive Date: 20100917
  Receipt Date: 20100910
  Transmission Date: 20110219
  Serious: Yes (Hospitalization)
  Sender: FDA-Public Use
  Company Number: PHHO2010IT13764

PATIENT
  Sex: Male
  Weight: 67 kg

DRUGS (1)
  1. AFINITOR [Suspect]
     Indication: METASTATIC RENAL CELL CARCINOMA
     Dosage: 10MG
     Route: 048
     Dates: start: 20091202, end: 20100902

REACTIONS (1)
  - HYPONATRAEMIA [None]
